FAERS Safety Report 12175210 (Version 1)
Quarter: 2016Q1

REPORT INFORMATION
  Report Type: Report from Study
  Country: BR (occurrence: BR)
  Receive Date: 20160314
  Receipt Date: 20160314
  Transmission Date: 20160526
  Serious: Yes (Other)
  Sender: FDA-Public Use
  Company Number: BR-JNJFOC-20160307109

PATIENT
  Sex: Female

DRUGS (4)
  1. SIMPONI [Suspect]
     Active Substance: GOLIMUMAB
     Indication: RHEUMATOID ARTHRITIS
     Route: 058
     Dates: start: 20150131, end: 201511
  2. SIMPONI [Suspect]
     Active Substance: GOLIMUMAB
     Indication: RHEUMATOID ARTHRITIS
     Route: 058
  3. RITMONORM [Concomitant]
     Active Substance: PROPAFENONE HYDROCHLORIDE
     Route: 065
  4. SYNTHROID [Concomitant]
     Active Substance: LEVOTHYROXINE SODIUM
     Route: 065

REACTIONS (6)
  - Sinusitis [Unknown]
  - Arthralgia [Unknown]
  - Therapeutic response decreased [Unknown]
  - Influenza [Unknown]
  - Blood uric acid [Unknown]
  - Crystal arthropathy [Unknown]

NARRATIVE: CASE EVENT DATE: 2015
